FAERS Safety Report 21711861 (Version 1)
Quarter: 2022Q4

REPORT INFORMATION
  Report Type: Spontaneous
  Country: US (occurrence: US)
  Receive Date: 20221212
  Receipt Date: 20221212
  Transmission Date: 20230113
  Serious: No
  Sender: FDA-Public Use
  Company Number: US-ORGANON-O2212USA000484

PATIENT
  Age: 85 Year
  Sex: Female

DRUGS (6)
  1. HYZAAR [Suspect]
     Active Substance: HYDROCHLOROTHIAZIDE\LOSARTAN POTASSIUM
     Indication: Hypertension
     Dosage: UNK
     Route: 048
     Dates: start: 2022
  2. ONGLYZA [SAXAGLIPTIN HYDROCHLORIDE] [Concomitant]
     Dosage: UNK
  3. AMILORIDE [Concomitant]
     Active Substance: AMILORIDE
     Dosage: UNK
  4. CARVEDILOL [Concomitant]
     Active Substance: CARVEDILOL
     Dosage: UNK
  5. DOXAZOSIN [Concomitant]
     Active Substance: DOXAZOSIN MESYLATE
     Dosage: UNK
  6. DULOXETINE [Concomitant]
     Active Substance: DULOXETINE
     Dosage: UNK

REACTIONS (3)
  - Product dose omission issue [Unknown]
  - Circumstance or information capable of leading to medication error [Unknown]
  - No adverse event [Unknown]

NARRATIVE: CASE EVENT DATE: 20221206
